FAERS Safety Report 6244060-4 (Version None)
Quarter: 2009Q2

REPORT INFORMATION
  Report Type: 
  Country: None (occurrence: None)
  Receive Date: 20090623
  Receipt Date: 20090623
  Transmission Date: 20091009
  Serious: Yes (Life-Threatening)
  Sender: FDA-Public Use
  Company Number: None

PATIENT
  Age: 74 Year
  Sex: Female
  Weight: 76.66 kg

DRUGS (1)
  1. THYMOGLOBULIN [Suspect]
     Indication: APLASTIC ANAEMIA
     Dosage: 200 MG Q 24 HRS IV DRIP; ONE DOSE ONLY SEVERE RXN
     Route: 041
     Dates: start: 20090505, end: 20090505

REACTIONS (4)
  - APLASTIC ANAEMIA [None]
  - DISEASE RECURRENCE [None]
  - FAILURE TO THRIVE [None]
  - UNEVALUABLE EVENT [None]
